FAERS Safety Report 17770102 (Version 2)
Quarter: 2020Q2

REPORT INFORMATION
  Report Type: Spontaneous
  Country: FI (occurrence: FI)
  Receive Date: 20200512
  Receipt Date: 20200518
  Transmission Date: 20200714
  Serious: Yes (Death)
  Sender: FDA-Public Use
  Company Number: FI-MYLANLABS-2020M1042840

PATIENT
  Age: 54 Year
  Sex: Female

DRUGS (5)
  1. CLOZAPINE. [Interacting]
     Active Substance: CLOZAPINE
     Indication: PRODUCT USED FOR UNKNOWN INDICATION
     Dosage: UNK
  2. LORAZEPAM. [Interacting]
     Active Substance: LORAZEPAM
     Indication: PRODUCT USED FOR UNKNOWN INDICATION
     Dosage: UNK
  3. DEXTROMETHORPHAN [Interacting]
     Active Substance: DEXTROMETHORPHAN
     Indication: PRODUCT USED FOR UNKNOWN INDICATION
     Dosage: UNK
     Route: 065
  4. FLUOXETINE [Suspect]
     Active Substance: FLUOXETINE HYDROCHLORIDE
     Indication: PRODUCT USED FOR UNKNOWN INDICATION
     Dosage: UNK
     Route: 065
  5. LEVOMEPROMAZINE [Interacting]
     Active Substance: LEVOMEPROMAZINE
     Dosage: UNK

REACTIONS (2)
  - Coronary artery disease [Fatal]
  - Drug interaction [Fatal]
